FAERS Safety Report 13439129 (Version 3)
Quarter: 2017Q2

REPORT INFORMATION
  Report Type: Spontaneous
  Country: US (occurrence: US)
  Receive Date: 20170412
  Receipt Date: 20170609
  Transmission Date: 20170830
  Serious: Yes (Hospitalization)
  Sender: FDA-Public Use
  Company Number: US-ACTELION-A-US2017-152314

PATIENT
  Age: 8 Month
  Sex: Male

DRUGS (2)
  1. TRACLEER [Suspect]
     Active Substance: BOSENTAN
     Indication: PULMONARY HYPERTENSION
     Dosage: 31.25 MG, (62.5 MG TABLET: DISSOLVE 1/2 TABLET IN 5 ML WATER)
     Route: 049
     Dates: start: 20170405
  2. TRACLEER [Suspect]
     Active Substance: BOSENTAN
     Dosage: 15.625 MG (31.25 MG TABLET DISSOLVED IN 5 ML WATER; GIVE 2.5 ML), BID
     Route: 049
     Dates: start: 20170406

REACTIONS (6)
  - Pulmonary vein stenosis [Unknown]
  - Pulmonary hypertension [Unknown]
  - Atrial septal defect [Unknown]
  - Product use issue [Unknown]
  - No adverse event [Unknown]
  - Catheterisation cardiac [Unknown]

NARRATIVE: CASE EVENT DATE: 20170509
